FAERS Safety Report 7918495-5 (Version None)
Quarter: 2011Q4

REPORT INFORMATION
  Report Type: 
  Country: None (occurrence: None)
  Receive Date: 20111116
  Receipt Date: 20111107
  Transmission Date: 20120403
  Serious: No
  Sender: FDA-Public Use
  Company Number: US-COVIDIEN/TYCO HEALTHCARE/MALLINCKRODT-T201102594

PATIENT
  Age: 24 Year
  Sex: Male

DRUGS (3)
  1. FENTANYL-100 [Suspect]
     Indication: PAIN
     Dosage: 25 UG/HR, Q 72 HRS
     Route: 062
     Dates: start: 20070101
  2. OXYCODONE HCL [Concomitant]
     Indication: PAIN
     Dosage: 15-30 MG, QID
     Route: 048
  3. LIDODERM [Concomitant]
     Indication: PAIN
     Dosage: 1 PATCH QD
     Route: 062

REACTIONS (2)
  - BLOOD BLISTER [None]
  - APPLICATION SITE RASH [None]
